FAERS Safety Report 5879209-6 (Version None)
Quarter: 2008Q3

REPORT INFORMATION
  Report Type: 
  Country: None (occurrence: None)
  Receive Date: 20080911
  Receipt Date: 20080911
  Transmission Date: 20090109
  Serious: Yes (Other)
  Sender: FDA-Public Use
  Company Number: None

PATIENT
  Age: 67 Year
  Sex: Female
  Weight: 53.0709 kg

DRUGS (2)
  1. RECLAST [Suspect]
     Indication: OSTEOPOROSIS
     Dosage: 5 MG ONCE IV DRIP
     Route: 041
     Dates: start: 20080905, end: 20080905
  2. BONIVA [Suspect]
     Dosage: 3 MG ONCE IV DRIP
     Route: 041
     Dates: start: 20070821, end: 20070821

REACTIONS (7)
  - EYE PAIN [None]
  - IRITIS [None]
  - MYALGIA [None]
  - NEURALGIA [None]
  - PHOTOPHOBIA [None]
  - POLLAKIURIA [None]
  - VERTIGO [None]
